FAERS Safety Report 4456015-0 (Version None)
Quarter: 2004Q3

REPORT INFORMATION
  Report Type: 
  Country: None (occurrence: None)
  Receive Date: 20040922
  Receipt Date: 20040913
  Transmission Date: 20050211
  Serious: Yes (Other)
  Sender: FDA-Public Use
  Company Number: PHNU2004DE03226

PATIENT
  Sex: Female

DRUGS (3)
  1. SANDIMMUNE [Suspect]
     Indication: RHEUMATOID ARTHRITIS
     Dosage: 2-2.5MG/KG
  2. ACE INHIBITOR NOS [Concomitant]
  3. METHOTREXATE [Concomitant]

REACTIONS (3)
  - CARDIAC FAILURE [None]
  - HYPERTENSION [None]
  - LEFT VENTRICULAR FAILURE [None]
